FAERS Safety Report 8486401-3 (Version None)
Quarter: 2012Q3

REPORT INFORMATION
  Report Type: 
  Country: None (occurrence: None)
  Receive Date: 20120703
  Receipt Date: 20120626
  Transmission Date: 20120928
  Serious: Yes (Other)
  Sender: FDA-Public Use
  Company Number: DE-TEVA-345228GER

PATIENT
  Sex: Male

DRUGS (4)
  1. AZILECT [Suspect]
     Indication: PARKINSON'S DISEASE
  2. STALEVO 100 [Concomitant]
  3. REQUIP [Concomitant]
  4. MADOPAR [Concomitant]

REACTIONS (1)
  - NON-HODGKIN'S LYMPHOMA [None]
